FAERS Safety Report 12628882 (Version 1)
Quarter: 2016Q3

REPORT INFORMATION
  Report Type: Spontaneous
  Country: DE (occurrence: DE)
  Receive Date: 20160808
  Receipt Date: 20160808
  Transmission Date: 20161109
  Serious: Yes (Death)
  Sender: FDA-Public Use
  Company Number: PHHY2016DE107444

PATIENT
  Age: 65 Year
  Sex: Female

DRUGS (4)
  1. BORTEZOMIB [Suspect]
     Active Substance: BORTEZOMIB
     Indication: PLASMA CELL MYELOMA
     Dosage: 1.6 MG/M2, D 1+8 REPETITION EVERY 3 WEEKS
     Route: 058
     Dates: start: 20160705
  2. FARYDAK [Suspect]
     Active Substance: PANOBINOSTAT
     Dosage: 20 MG, (DAY 8, 1 ST CYCLE)
     Route: 048
     Dates: start: 20160712
  3. FARYDAK [Suspect]
     Active Substance: PANOBINOSTAT
     Indication: PLASMA CELL MYELOMA
     Dosage: 20 MG, (DAY 1, 3, 5, 8, 10, 12 REPETITION EVERY 3 WEEKS)
     Route: 048
     Dates: start: 20160705
  4. DEXAMETHASONE. [Suspect]
     Active Substance: DEXAMETHASONE
     Indication: PLASMA CELL MYELOMA
     Dosage: 8 MG, 1, 2, 8, 9 REPETITION EVERY 3 WEEKS
     Route: 048
     Dates: start: 20160705

REACTIONS (1)
  - Death [Fatal]

NARRATIVE: CASE EVENT DATE: 20160718
